FAERS Safety Report 7775712-2 (Version None)
Quarter: 2011Q3

REPORT INFORMATION
  Report Type: 
  Country: None (occurrence: None)
  Receive Date: 20110923
  Receipt Date: 20110920
  Transmission Date: 20111222
  Serious: Yes (Hospitalization)
  Sender: FDA-Public Use
  Company Number: US-GLAXOSMITHKLINE-B0741634A

PATIENT
  Age: 66 Year
  Sex: Male

DRUGS (5)
  1. ZOCOR [Concomitant]
  2. AVANDIA [Suspect]
     Indication: DIABETES MELLITUS
     Dosage: 8MG TWICE PER DAY
     Route: 048
     Dates: start: 20030305, end: 20070330
  3. TRICOR [Concomitant]
  4. PROTONIX [Concomitant]
  5. SINGULAIR [Concomitant]

REACTIONS (6)
  - MYOCARDIAL INFARCTION [None]
  - CEREBROVASCULAR ACCIDENT [None]
  - ATRIAL FIBRILLATION [None]
  - CORONARY ARTERY DISEASE [None]
  - CARDIAC FAILURE CONGESTIVE [None]
  - LUNG DISORDER [None]
